FAERS Safety Report 8191792-7 (Version None)
Quarter: 2012Q1

REPORT INFORMATION
  Report Type: 
  Country: None (occurrence: None)
  Receive Date: 20120307
  Receipt Date: 20120302
  Transmission Date: 20120608
  Serious: Yes (Life-Threatening, Hospitalization, Other)
  Sender: FDA-Public Use
  Company Number: GB-PFIZER INC-2012057669

PATIENT
  Age: 66 Year
  Sex: Male

DRUGS (3)
  1. MORPHINE SULFATE [Concomitant]
  2. SUNITINIB MALATE [Suspect]
     Indication: INSULINOMA
     Dosage: UNK
     Route: 048
     Dates: start: 20110601, end: 20111101
  3. GLUCAGON [Concomitant]

REACTIONS (2)
  - HYPOGLYCAEMIC COMA [None]
  - HYPOGLYCAEMIA [None]
